FAERS Safety Report 7124596-4 (Version None)
Quarter: 2010Q4

REPORT INFORMATION
  Report Type: 
  Country: None (occurrence: None)
  Receive Date: 20101122
  Receipt Date: 20101122
  Transmission Date: 20110411
  Serious: No
  Sender: FDA-Public Use
  Company Number: None

PATIENT
  Age: 50 Year
  Sex: Male
  Weight: 70 kg

DRUGS (1)
  1. URIMAX-F CIPLA [Suspect]
     Indication: BENIGN PROSTATIC HYPERPLASIA
     Dosage: 1 TABLET PER DAY
     Dates: start: 20101115, end: 20101120

REACTIONS (2)
  - ERECTILE DYSFUNCTION [None]
  - SEMEN VOLUME DECREASED [None]
